FAERS Safety Report 8950267 (Version 1)
Quarter: 2012Q4

REPORT INFORMATION
  Report Type: 
  Country: US (occurrence: US)
  Receive Date: 20121205
  Receipt Date: 20121205
  Transmission Date: 20130627
  Serious: Yes (Other)
  Sender: FDA-Public Use
  Company Number: CHPA2012US017471

PATIENT
  Age: 66 Year
  Sex: Female

DRUGS (3)
  1. GAS-X EXTRA STRENGTH [Suspect]
     Dosage: 1 DF, QD
     Route: 048
  2. GAS-X EXTRA STRENGTH [Suspect]
     Dosage: 1 DF, QD
     Route: 048
  3. HYDROXYCHLOROQUINE [Concomitant]
     Indication: SYSTEMIC LUPUS ERYTHEMATOSUS
     Dosage: 200 mg, UNK

REACTIONS (2)
  - Systemic lupus erythematosus [Unknown]
  - Drug ineffective [Unknown]
